FAERS Safety Report 19358593 (Version 1)
Quarter: 2021Q2

REPORT INFORMATION
  Report Type: Spontaneous
  Country: US (occurrence: US)
  Receive Date: 20210601
  Receipt Date: 20210601
  Transmission Date: 20210717
  Serious: No
  Sender: FDA-Public Use
  Company Number: US-BEH-2021132154

PATIENT
  Age: 7 Year
  Sex: Male

DRUGS (2)
  1. IDELVION [Suspect]
     Active Substance: COAGULATION FACTOR IX RECOMBINANT HUMAN
     Indication: FACTOR VIII DEFICIENCY
     Dosage: 1170 INTERNATIONAL UNIT, QW
     Route: 042
     Dates: start: 20200916
  2. IDELVION [Suspect]
     Active Substance: COAGULATION FACTOR IX RECOMBINANT HUMAN
     Indication: FACTOR VIII DEFICIENCY
     Dosage: 1170 INTERNATIONAL UNIT, QW
     Route: 042
     Dates: start: 20200916

REACTIONS (1)
  - Head injury [Unknown]

NARRATIVE: CASE EVENT DATE: 202105
